FAERS Safety Report 5638453-3 (Version None)
Quarter: 2008Q1

REPORT INFORMATION
  Report Type: 
  Country: None (occurrence: None)
  Receive Date: 20080226
  Receipt Date: 20080221
  Transmission Date: 20080703
  Serious: Yes (Other)
  Sender: FDA-Public Use
  Company Number: US-BRISTOL-MYERS SQUIBB COMPANY-14087167

PATIENT
  Age: 56 Year
  Sex: Male

DRUGS (7)
  1. METFORMIN HCL [Suspect]
  2. PLAVIX [Suspect]
     Dates: end: 20080221
  3. LANTUS [Suspect]
  4. ZETIA [Suspect]
  5. CRESTOR [Suspect]
  6. COZAAR [Suspect]
  7. BYETTA [Concomitant]
     Indication: PREMEDICATION

REACTIONS (1)
  - NEPHRITIS ALLERGIC [None]
